FAERS Safety Report 11507582 (Version 1)
Quarter: 2015Q3

REPORT INFORMATION
  Report Type: Spontaneous
  Country: US (occurrence: None)
  Receive Date: 20150914
  Receipt Date: 20150914
  Transmission Date: 20151125
  Serious: Yes (Life-Threatening, Disabling)
  Sender: FDA-Public Use
  Company Number: None

PATIENT
  Age: 61 Year
  Sex: Female
  Weight: 68.04 kg

DRUGS (5)
  1. DEXTROAMPHETAMINE. [Concomitant]
     Active Substance: DEXTROAMPHETAMINE SULFATE
  2. ASPIRIN. [Concomitant]
     Active Substance: ASPIRIN
  3. BUPROPION. [Concomitant]
     Active Substance: BUPROPION
  4. DULOXETINE 60 MG DR. REDDYS [Suspect]
     Active Substance: DULOXETINE
     Indication: MAJOR DEPRESSION
     Dosage: 2 PILLS
     Dates: start: 20150905, end: 20150912
  5. DULOXETINE 60 MG CARACO [Suspect]
     Active Substance: DULOXETINE
     Indication: MAJOR DEPRESSION
     Dosage: 2 PILLS
     Route: 048
     Dates: start: 20150822, end: 20150904

REACTIONS (5)
  - Confusional state [None]
  - Insomnia [None]
  - Lethargy [None]
  - Depression [None]
  - Decreased activity [None]

NARRATIVE: CASE EVENT DATE: 20150912
